FAERS Safety Report 9495112 (Version 1)
Quarter: 2013Q3

REPORT INFORMATION
  Report Type: Spontaneous
  Country: DE (occurrence: DE)
  Receive Date: 20130903
  Receipt Date: 20130903
  Transmission Date: 20140515
  Serious: Yes (Other)
  Sender: FDA-Public Use
  Company Number: DE-SANOFI-AVENTIS-2013SA086801

PATIENT
  Age: 46 Year
  Sex: Male

DRUGS (5)
  1. FLUOROURACIL [Suspect]
     Indication: BLADDER CANCER
     Dosage: 12 CYCLES
     Route: 065
     Dates: start: 201006, end: 201101
  2. OXALIPLATIN [Suspect]
     Indication: BLADDER CANCER
     Dosage: 12 CYCLES OF THERAPY
     Route: 065
     Dates: start: 201006, end: 201101
  3. LEUCOVORIN [Suspect]
     Indication: BLADDER CANCER
     Dosage: 12 CYCLES
     Route: 065
     Dates: start: 201006, end: 201101
  4. IRINOTECAN [Suspect]
     Indication: BLADDER CANCER
     Dosage: 12 CYCLES
     Route: 065
     Dates: start: 201006, end: 201101
  5. CETUXIMAB [Suspect]
     Indication: BLADDER CANCER
     Route: 065
     Dates: start: 201006

REACTIONS (3)
  - Polyneuropathy [Unknown]
  - Off label use [Unknown]
  - Rash [Unknown]
